FAERS Safety Report 16719597 (Version 2)
Quarter: 2019Q4

REPORT INFORMATION
  Report Type: Spontaneous
  Country: US (occurrence: US)
  Receive Date: 20190820
  Receipt Date: 20191102
  Transmission Date: 20200122
  Serious: No
  Sender: FDA-Public Use
  Company Number: US-SHIRE-US201926978

PATIENT
  Sex: Female

DRUGS (1)
  1. MYDAYIS [Suspect]
     Active Substance: AMPHETAMINE ASPARTATE\AMPHETAMINE SULFATE\DEXTROAMPHETAMINE SACCHARATE\DEXTROAMPHETAMINE SULFATE
     Indication: ATTENTION DEFICIT/HYPERACTIVITY DISORDER
     Dosage: 25 MILLIGRAM
     Route: 065
     Dates: start: 201905

REACTIONS (6)
  - Disturbance in attention [Unknown]
  - Drug ineffective [Unknown]
  - Depression [Unknown]
  - Speech disorder [Unknown]
  - Therapeutic product effect incomplete [Unknown]
  - Insomnia [Unknown]
